FAERS Safety Report 18208943 (Version 1)
Quarter: 2020Q3

REPORT INFORMATION
  Report Type: Spontaneous
  Country: CO (occurrence: CO)
  Receive Date: 20200828
  Receipt Date: 20200828
  Transmission Date: 20201103
  Serious: Yes (Other)
  Sender: FDA-Public Use
  Company Number: CO-PFIZER INC-2020267827

PATIENT
  Age: 59 Year
  Sex: Female

DRUGS (3)
  1. REAMPLA [Suspect]
     Active Substance: PALBOCICLIB
     Dosage: 100 MG, CYCLIC (21 DAYS AND REST 7 DAYS)
     Route: 048
     Dates: start: 20200302
  2. LETROZOLE. [Suspect]
     Active Substance: LETROZOLE
     Dosage: UNK
  3. REAMPLA [Suspect]
     Active Substance: PALBOCICLIB
     Indication: BREAST CANCER STAGE III
     Dosage: 125 MG, CYCLIC (21 DAYS AND REST 7 DAYS)
     Route: 048
     Dates: start: 202002

REACTIONS (11)
  - Lacrimation increased [Not Recovered/Not Resolved]
  - Hypertension [Unknown]
  - Epistaxis [Unknown]
  - Ocular discomfort [Not Recovered/Not Resolved]
  - Platelet count decreased [Recovered/Resolved]
  - Dry skin [Not Recovered/Not Resolved]
  - Asthenia [Unknown]
  - Eye irritation [Not Recovered/Not Resolved]
  - Ephelides [Not Recovered/Not Resolved]
  - Alopecia [Not Recovered/Not Resolved]
  - Skin discolouration [Not Recovered/Not Resolved]

NARRATIVE: CASE EVENT DATE: 202002
